FAERS Safety Report 5142589-3 (Version None)
Quarter: 2006Q4

REPORT INFORMATION
  Report Type: 
  Country: None (occurrence: None)
  Receive Date: 20061027
  Receipt Date: 20061012
  Transmission Date: 20070319
  Serious: Yes (Hospitalization)
  Sender: FDA-Public Use
  Company Number: US018322

PATIENT
  Age: 24 Year
  Sex: Female

DRUGS (2)
  1. TRISENOX [Suspect]
     Indication: ACUTE PROMYELOCYTIC LEUKAEMIA
     Dates: end: 20060601
  2. TRISENOX [Suspect]
     Indication: ACUTE PROMYELOCYTIC LEUKAEMIA
     Dates: start: 20060701

REACTIONS (9)
  - DEPRESSED LEVEL OF CONSCIOUSNESS [None]
  - ENCEPHALOPATHY [None]
  - EYE ROLLING [None]
  - FEBRILE NEUTROPENIA [None]
  - HEAD TITUBATION [None]
  - MOVEMENT DISORDER [None]
  - PANCREATITIS [None]
  - SOMNOLENCE [None]
  - URINE ARSENIC INCREASED [None]
